FAERS Safety Report 7239505-7 (Version None)
Quarter: 2011Q1

REPORT INFORMATION
  Report Type: 
  Country: None (occurrence: None)
  Receive Date: 20110121
  Receipt Date: 20110114
  Transmission Date: 20110831
  Serious: Yes (Other)
  Sender: FDA-Public Use
  Company Number: US-US-EMD SERONO, INC.-7031448

PATIENT
  Sex: Female
  Weight: 56 kg

DRUGS (5)
  1. REBIF [Suspect]
     Route: 058
  2. OTHER UNSPECIFIED MEDICATIONS [Concomitant]
  3. REBIF [Suspect]
     Route: 058
  4. IBUPROFEN [Concomitant]
     Indication: PREMEDICATION
  5. REBIF [Suspect]
     Indication: MULTIPLE SCLEROSIS
     Route: 058
     Dates: start: 20080414

REACTIONS (7)
  - ASTHENIA [None]
  - CEREBRAL ATROPHY [None]
  - GAIT DISTURBANCE [None]
  - INJECTION SITE PAIN [None]
  - INJECTION SITE ERYTHEMA [None]
  - BALANCE DISORDER [None]
  - INJECTION SITE SWELLING [None]
